FAERS Safety Report 9543176 (Version 2)
Quarter: 2013Q3

REPORT INFORMATION
  Report Type: Spontaneous
  Country: US (occurrence: US)
  Receive Date: 20130923
  Receipt Date: 20130923
  Transmission Date: 20140515
  Serious: Yes (Other)
  Sender: FDA-Public Use
  Company Number: US-NAPPMUNDI-USA-2012-0090863

PATIENT
  Age: 70 Year
  Sex: Female

DRUGS (5)
  1. DILAUDID TABLET [Suspect]
     Indication: PRODUCT USED FOR UNKNOWN INDICATION
     Dosage: UNK
     Dates: end: 20120719
  2. VIIBRYD [Suspect]
     Indication: DEPRESSION
     Dosage: 10 MG, DAILY
  3. VIIBRYD [Suspect]
     Dosage: 20 MG, DAILY
     Route: 048
     Dates: start: 201207, end: 20120717
  4. VIIBRYD [Suspect]
     Dosage: 40 MG, DAILY
     Route: 048
     Dates: start: 20120717
  5. ISOPHOSPHAMIDE [Suspect]
     Indication: CHEMOTHERAPY
     Dosage: 10 MG, UNK
     Route: 048
     Dates: start: 201207

REACTIONS (2)
  - Confusional state [Recovered/Resolved]
  - Incoherent [Recovered/Resolved]
